FAERS Safety Report 9446033 (Version 2)
Quarter: 2018Q3

REPORT INFORMATION
  Report Type: Spontaneous
  Country: US (occurrence: US)
  Receive Date: 20130807
  Receipt Date: 20180903
  Transmission Date: 20181010
  Serious: Yes (Other)
  Sender: FDA-Public Use
  Company Number: US-FRI-1000047355

PATIENT
  Age: 40 Year
  Sex: Male

DRUGS (1)
  1. MILNACIPRAN UNK [Suspect]
     Active Substance: MILNACIPRAN
     Indication: FIBROMYALGIA
     Dosage: 50 MG, BID
     Route: 065

REACTIONS (5)
  - Hemiplegia [Recovered/Resolved]
  - Withdrawal syndrome [Unknown]
  - Aphasia [Unknown]
  - Eye movement disorder [Unknown]
  - Parkinsonian rest tremor [Recovered/Resolved]
